FAERS Safety Report 8244119-6 (Version None)
Quarter: 2012Q1

REPORT INFORMATION
  Report Type: 
  Country: None (occurrence: None)
  Receive Date: 20120309
  Receipt Date: 20101025
  Transmission Date: 20120608
  Serious: Yes (Hospitalization, Other)
  Sender: FDA-Public Use
  Company Number: PHHY2010US28888

PATIENT
  Age: 46 Year
  Sex: Female

DRUGS (7)
  1. LORTAB [Concomitant]
  2. GABAPENTIN [Concomitant]
  3. IBUPROFEN [Concomitant]
  4. EXTAVIA [Suspect]
     Indication: MULTIPLE SCLEROSIS
     Dosage: SEE IMAGE
     Route: 058
     Dates: start: 20100305
  5. EXTAVIA [Suspect]
     Indication: MULTIPLE SCLEROSIS
     Dosage: SEE IMAGE
     Route: 058
     Dates: start: 20100320
  6. EXTAVIA [Suspect]
     Indication: MULTIPLE SCLEROSIS
     Dosage: SEE IMAGE
     Route: 058
     Dates: start: 20100401
  7. BACLOFEN [Concomitant]

REACTIONS (5)
  - INJECTION SITE ERYTHEMA [None]
  - FATIGUE [None]
  - INJECTION SITE RASH [None]
  - DRUG DOSE OMISSION [None]
  - MALAISE [None]
